FAERS Safety Report 5085297-X (Version None)
Quarter: 2006Q3

REPORT INFORMATION
  Report Type: 
  Country: None (occurrence: None)
  Receive Date: 20060731
  Receipt Date: 20060109
  Transmission Date: 20061208
  Serious: Yes (Hospitalization, Other)
  Sender: FDA-Public Use
  Company Number: 200512395BWH

PATIENT
  Age: 25 Year
  Sex: Female

DRUGS (2)
  1. AVELOX [Suspect]
     Indication: BRONCHITIS
     Dosage: 400 MG, ONCE, ORAL
     Route: 048
     Dates: start: 20050513
  2. AVELOX [Suspect]
     Indication: SINUSITIS
     Dosage: 400 MG, ONCE, ORAL
     Route: 048
     Dates: start: 20050513

REACTIONS (9)
  - ANAPHYLACTIC SHOCK [None]
  - BALANCE DISORDER [None]
  - CONVULSION [None]
  - DIZZINESS [None]
  - DYSPNOEA [None]
  - LOSS OF CONSCIOUSNESS [None]
  - TREMOR [None]
  - URTICARIA [None]
  - VOMITING [None]
